FAERS Safety Report 5717536-3 (Version None)
Quarter: 2008Q2

REPORT INFORMATION
  Report Type: 
  Country: None (occurrence: None)
  Receive Date: 20080425
  Receipt Date: 20080415
  Transmission Date: 20081010
  Serious: Yes (Hospitalization)
  Sender: FDA-Public Use
  Company Number: BR-JNJFOC-20080404879

PATIENT
  Age: 30 Year
  Sex: Female
  Weight: 59 kg

DRUGS (2)
  1. ORTHO EVRA [Suspect]
     Indication: ENDOMETRIOSIS
  2. ORTHO EVRA [Suspect]
     Indication: CONTRACEPTION

REACTIONS (4)
  - BLOOD PRESSURE DECREASED [None]
  - DIARRHOEA [None]
  - NAUSEA [None]
  - OFF LABEL USE [None]
